FAERS Safety Report 25010041 (Version 6)
Quarter: 2025Q4

REPORT INFORMATION
  Report Type: Report from Study
  Country: AR (occurrence: AR)
  Receive Date: 20250225
  Receipt Date: 20251221
  Transmission Date: 20260118
  Serious: Yes (Life-Threatening, Hospitalization, Other)
  Sender: AMGEN
  Company Number: AR-AMGEN-ARGSL2025034856

PATIENT
  Age: 68 Year
  Sex: Male

DRUGS (2)
  1. VECTIBIX [Suspect]
     Active Substance: PANITUMUMAB
     Indication: Colorectal cancer
     Dosage: UNK, 15 DAYS
     Route: 065
     Dates: start: 20241015, end: 20250203
  2. VECTIBIX [Suspect]
     Active Substance: PANITUMUMAB
     Dosage: UNK, 15 DAYS
     Route: 065
     Dates: start: 20250226

REACTIONS (8)
  - Post procedural infection [Unknown]
  - Neobladder surgery [Unknown]
  - Ileostomy [Unknown]
  - Sepsis [Unknown]
  - Colorectal cancer recurrent [Unknown]
  - Urinary retention [Not Recovered/Not Resolved]
  - White blood cell count decreased [Unknown]
  - Device leakage [Unknown]

NARRATIVE: CASE EVENT DATE: 20250101
